FAERS Safety Report 9864136 (Version 1)
Quarter: 2014Q1

REPORT INFORMATION
  Report Type: Spontaneous
  Country: GB (occurrence: GB)
  Receive Date: 20140203
  Receipt Date: 20140203
  Transmission Date: 20141002
  Serious: Yes (Other)
  Sender: FDA-Public Use
  Company Number: GB-PFIZER INC-2014026737

PATIENT
  Age: 45 Year
  Sex: Male
  Weight: 114.9 kg

DRUGS (1)
  1. ANADIN IBUPROFEN [Suspect]
     Dosage: 200 MG, UNK (200 MG TABLETS)
     Dates: start: 20140117

REACTIONS (1)
  - Tremor [Unknown]
